FAERS Safety Report 16536596 (Version 3)
Quarter: 2019Q3

REPORT INFORMATION
  Report Type: Spontaneous
  Country: US (occurrence: US)
  Receive Date: 20190706
  Receipt Date: 20190822
  Transmission Date: 20191004
  Serious: Yes (Other)
  Sender: FDA-Public Use
  Company Number: US-AMGEN-USASP2019106180

PATIENT
  Age: 75 Year
  Sex: Male
  Weight: 82.09 kg

DRUGS (2)
  1. REPATHA [Suspect]
     Active Substance: EVOLOCUMAB
     Indication: PRODUCT USED FOR UNKNOWN INDICATION
     Dosage: 140 MILLIGRAM, Q3WK
     Route: 058
     Dates: start: 2017
  2. REPATHA [Suspect]
     Active Substance: EVOLOCUMAB

REACTIONS (13)
  - Road traffic accident [Unknown]
  - Chest pain [Unknown]
  - Cardiac disorder [Unknown]
  - Paranasal sinus hypersecretion [Unknown]
  - Hypersensitivity [Unknown]
  - Off label use [Unknown]
  - Pulmonary congestion [Unknown]
  - Chest discomfort [Unknown]
  - Femur fracture [Recovering/Resolving]
  - Secretion discharge [Unknown]
  - Productive cough [Unknown]
  - Fall [Unknown]
  - Nasal congestion [Not Recovered/Not Resolved]

NARRATIVE: CASE EVENT DATE: 2017
